FAERS Safety Report 8836637 (Version 1)
Quarter: 2012Q4

REPORT INFORMATION
  Report Type: Spontaneous
  Country: IT (occurrence: None)
  Receive Date: 20121009
  Receipt Date: 20121009
  Transmission Date: 20130627
  Serious: Yes (Other)
  Sender: FDA-Public Use
  Company Number: IT-MACLEODS PHARMA-000020

PATIENT
  Age: 61 Year
  Sex: Male

DRUGS (4)
  1. LEVOFLOXACIN (LEVOFLOXACIN) [Suspect]
     Indication: BACTERIAL INFECTION
     Route: 048
  2. HYDROMORPHONE [Suspect]
     Indication: DRUG USE FOR UNKNOWN INDICATION
     Route: 048
  3. HEPARIN [Suspect]
     Indication: DEEP VEIN THROMBOSIS
     Route: 058
  4. GLIBENCLAMIDE [Suspect]
     Indication: TYPE 2 DIABETES MELLITUS

REACTIONS (7)
  - Pyrexia [None]
  - Urinary tract infection [None]
  - Respiratory tract infection [None]
  - Blood glucose decreased [None]
  - Unresponsive to stimuli [None]
  - Drug interaction [None]
  - Bacterial infection [None]
